FAERS Safety Report 4405394-9 (Version None)
Quarter: 2004Q3

REPORT INFORMATION
  Report Type: 
  Country: None (occurrence: None)
  Receive Date: 20040723
  Receipt Date: 20030805
  Transmission Date: 20050211
  Serious: No
  Sender: FDA-Public Use
  Company Number: US-GLAXOSMITHKLINE-A0419745A

PATIENT
  Age: 54 Year
  Sex: Male

DRUGS (8)
  1. AVANDIA [Suspect]
     Dosage: 8MG PER DAY
     Route: 048
     Dates: start: 20030805
  2. LIPITOR [Concomitant]
  3. ASPIRIN [Concomitant]
  4. GLUCOTROL [Concomitant]
  5. DITROPAN [Concomitant]
  6. LEVAQUIN [Concomitant]
  7. VITAMIN C [Concomitant]
  8. MULTIVITAMIN + IRON [Concomitant]

REACTIONS (4)
  - ABDOMINAL PAIN UPPER [None]
  - HYPERHIDROSIS [None]
  - NAUSEA [None]
  - PALLOR [None]
